FAERS Safety Report 7494208-9 (Version None)
Quarter: 2011Q2

REPORT INFORMATION
  Report Type: 
  Country: None (occurrence: None)
  Receive Date: 20110520
  Receipt Date: 20110506
  Transmission Date: 20111010
  Serious: Yes (Hospitalization)
  Sender: FDA-Public Use
  Company Number: CH-JNJFOC-20110504485

PATIENT
  Age: 3 Decade
  Sex: Female

DRUGS (2)
  1. REMICADE [Suspect]
     Indication: SPONDYLITIS
     Route: 042
     Dates: start: 20110415, end: 20110506
  2. HYDROCORTISONE [Concomitant]
     Indication: PREMEDICATION

REACTIONS (6)
  - INFUSION RELATED REACTION [None]
  - OEDEMA PERIPHERAL [None]
  - LOCAL SWELLING [None]
  - URTICARIA [None]
  - JOINT STIFFNESS [None]
  - JOINT SWELLING [None]
